FAERS Safety Report 19163200 (Version 1)
Quarter: 2021Q2

REPORT INFORMATION
  Report Type: Spontaneous
  Country: US (occurrence: US)
  Receive Date: 20210421
  Receipt Date: 20210421
  Transmission Date: 20210717
  Serious: Yes (Hospitalization)
  Sender: FDA-Public Use
  Company Number: US-TEVA-2021-US-1902709

PATIENT
  Age: 71 Year
  Sex: Female

DRUGS (4)
  1. CISPLATIN. [Suspect]
     Active Substance: CISPLATIN
     Indication: OVARIAN CANCER RECURRENT
     Dosage: ADMINISTERED EVERY 21 DAYS SCHEDULED FOR 6 CYCLES IN 1L OF SODIUM?CHLORIDE [NORMAL SALINE]
     Route: 033
     Dates: start: 20141229
  2. PACLITAXEL. [Concomitant]
     Active Substance: PACLITAXEL
     Indication: OVARIAN CANCER RECURRENT
     Dosage: ADMINISTERED IN 500ML OF SODIUM?CHLORIDE [NORMAL SALINE] OVER 3HOURS ON DAY 1
     Route: 042
     Dates: start: 20141229
  3. NORMAL SALINE [Concomitant]
     Active Substance: SODIUM CHLORIDE
     Indication: VEHICLE SOLUTION USE
     Route: 042
     Dates: start: 20141229
  4. NORMAL SALINE [Concomitant]
     Active Substance: SODIUM CHLORIDE
     Route: 042
     Dates: start: 20141229

REACTIONS (2)
  - Acute kidney injury [Recovered/Resolved]
  - Hypomagnesaemia [Not Recovered/Not Resolved]

NARRATIVE: CASE EVENT DATE: 20141229
